FAERS Safety Report 7460662-1 (Version None)
Quarter: 2011Q2

REPORT INFORMATION
  Report Type: 
  Country: None (occurrence: None)
  Receive Date: 20110505
  Receipt Date: 20110502
  Transmission Date: 20111010
  Serious: Yes (Other)
  Sender: FDA-Public Use
  Company Number: US-ABBOTT-10P-163-0622737-00

PATIENT
  Sex: Male
  Weight: 106.24 kg

DRUGS (4)
  1. FOLIC ACID [Concomitant]
     Indication: RHEUMATOID ARTHRITIS
  2. METHOTREXATE [Concomitant]
     Indication: RHEUMATOID ARTHRITIS
  3. HUMIRA [Suspect]
     Indication: RHEUMATOID ARTHRITIS
     Dates: start: 20071221, end: 20110401
  4. HYDROCODONE BITARTRATE [Concomitant]
     Indication: PAIN
     Dosage: 7.5/650MG

REACTIONS (28)
  - HYPOAESTHESIA [None]
  - DIZZINESS POSTURAL [None]
  - PRODUCTIVE COUGH [None]
  - BLISTER [None]
  - OEDEMA PERIPHERAL [None]
  - SCAR [None]
  - VISUAL IMPAIRMENT [None]
  - INJECTION SITE HAEMORRHAGE [None]
  - INJECTION SITE PARAESTHESIA [None]
  - PARAESTHESIA [None]
  - ARTHRITIS [None]
  - MUSCULOSKELETAL PAIN [None]
  - SEASONAL ALLERGY [None]
  - THERMAL BURN [None]
  - FEELING OF DESPAIR [None]
  - INCREASED UPPER AIRWAY SECRETION [None]
  - EYE PRURITUS [None]
  - TENDERNESS [None]
  - DEPRESSION [None]
  - EMPHYSEMA [None]
  - PAIN [None]
  - INJECTION SITE NODULE [None]
  - TREATMENT NONCOMPLIANCE [None]
  - NODULE [None]
  - JOINT SWELLING [None]
  - MOVEMENT DISORDER [None]
  - OCULAR HYPERAEMIA [None]
  - INJECTION SITE PAIN [None]
